FAERS Safety Report 15506635 (Version 1)
Quarter: 2018Q4

REPORT INFORMATION
  Report Type: Spontaneous
  Country: US (occurrence: US)
  Receive Date: 20181016
  Receipt Date: 20181016
  Transmission Date: 20190205
  Serious: No
  Sender: FDA-Public Use
  Company Number: PHEH2018US043230

PATIENT
  Age: 37 Year
  Sex: Female

DRUGS (1)
  1. TYKERB [Suspect]
     Active Substance: LAPATINIB DITOSYLATE
     Indication: ILL-DEFINED DISORDER
     Dosage: 250 MG, QD (4 TABLETS)
     Route: 048
     Dates: start: 20170612, end: 20181008

REACTIONS (1)
  - Therapy non-responder [Unknown]
